FAERS Safety Report 24263305 (Version 2)
Quarter: 2024Q4

REPORT INFORMATION
  Report Type: Report from Study
  Country: US (occurrence: US)
  Receive Date: 20240829
  Receipt Date: 20241021
  Transmission Date: 20250114
  Serious: Yes (Death, Hospitalization)
  Sender: DAIICHI
  Company Number: US-DSJP-DSU-2024-142430

PATIENT
  Sex: Male

DRUGS (1)
  1. ENHERTU [Suspect]
     Active Substance: FAM-TRASTUZUMAB DERUXTECAN-NXKI
     Indication: Product used for unknown indication
     Dosage: 400 MG
     Route: 042
     Dates: start: 20240702, end: 20240827

REACTIONS (2)
  - Death [Fatal]
  - Sepsis [Not Recovered/Not Resolved]
